FAERS Safety Report 24753359 (Version 1)
Quarter: 2024Q4

REPORT INFORMATION
  Report Type: Report from Study
  Country: US (occurrence: US)
  Receive Date: 20241219
  Receipt Date: 20241219
  Transmission Date: 20250115
  Serious: Yes (Other)
  Sender: ABBVIE
  Company Number: US-ABBVIE-6050021

PATIENT
  Age: 68 Year
  Sex: Male

DRUGS (1)
  1. CREON [Suspect]
     Active Substance: PANCRELIPASE AMYLASE\PANCRELIPASE LIPASE\PANCRELIPASE PROTEASE
     Indication: Product used for unknown indication
     Route: 048
     Dates: start: 20241129

REACTIONS (5)
  - Gastrointestinal carcinoma [Unknown]
  - Weight decreased [Unknown]
  - Pancreatic cyst [Unknown]
  - Malnutrition [Unknown]
  - Nausea [Unknown]

NARRATIVE: CASE EVENT DATE: 20240101
